FAERS Safety Report 5092025-0 (Version None)
Quarter: 2006Q3

REPORT INFORMATION
  Report Type: 
  Country: None (occurrence: None)
  Receive Date: 20060825
  Receipt Date: 20060817
  Transmission Date: 20061208
  Serious: Yes (Hospitalization)
  Sender: FDA-Public Use
  Company Number: 2006RR-03388

PATIENT
  Age: 55 Year
  Sex: Female
  Weight: 75 kg

DRUGS (1)
  1. CEFUROXIME AXETIL [Suspect]
     Dosage: 250 MG, BID, ORAL
     Route: 048
     Dates: start: 20050103

REACTIONS (6)
  - AKINESIA [None]
  - DYSPNOEA [None]
  - HYPOAESTHESIA ORAL [None]
  - LOSS OF CONSCIOUSNESS [None]
  - RASH [None]
  - VOMITING [None]
